FAERS Safety Report 26053387 (Version 3)
Quarter: 2025Q4

REPORT INFORMATION
  Report Type: Spontaneous
  Country: EG (occurrence: EG)
  Receive Date: 20251117
  Receipt Date: 20251214
  Transmission Date: 20260118
  Serious: Yes (Other)
  Sender: SANOFI AVENTIS
  Company Number: EG-SA-2025SA338615

PATIENT
  Age: 70 Year
  Sex: Female

DRUGS (2)
  1. APIDRA SOLOSTAR [Suspect]
     Active Substance: INSULIN GLULISINE
     Indication: Type 2 diabetes mellitus
     Dosage: UNK UNK, TID
     Route: 065
     Dates: start: 2010
  2. VITAMINS NOS [Concomitant]
     Active Substance: VITAMINS
     Indication: Supplementation therapy
     Dosage: UNK

REACTIONS (4)
  - General physical health deterioration [Unknown]
  - Blood glucose increased [Recovered/Resolved]
  - Poor quality product administered [Unknown]
  - Device issue [Unknown]

NARRATIVE: CASE EVENT DATE: 20250101
